FAERS Safety Report 9989789 (Version 1)
Quarter: 2014Q1

REPORT INFORMATION
  Report Type: Spontaneous
  Country: US (occurrence: None)
  Receive Date: 20140123
  Receipt Date: 20140123
  Transmission Date: 20141002
  Serious: Yes (Hospitalization)
  Sender: FDA-Public Use
  Company Number: UTC-037432

PATIENT
  Age: 30 Year
  Sex: Female
  Weight: 107.7 kg

DRUGS (2)
  1. REMODULIN [Suspect]
     Indication: PULMONARY ARTERIAL HYPERTENSION
     Dosage: 12.96 UG/KG (0.009 UG/KG,1 IN 1 MIN),SUBCUTANEOUS
     Route: 058
     Dates: start: 20130803
  2. SILDENAFIL (UNKNOWN) [Concomitant]

REACTIONS (2)
  - Dyspnoea [None]
  - Oedema [None]
